FAERS Safety Report 4390629-1 (Version None)
Quarter: 2004Q2

REPORT INFORMATION
  Report Type: 
  Country: None (occurrence: None)
  Receive Date: 20040628
  Receipt Date: 20040614
  Transmission Date: 20050107
  Serious: Yes (Hospitalization)
  Sender: FDA-Public Use
  Company Number: 2004GB01406

PATIENT
  Sex: Female
  Weight: 85 kg

DRUGS (18)
  1. QUETIAPINE [Suspect]
     Indication: ABNORMAL BEHAVIOUR
     Dosage: 25 MG BID PO
     Route: 048
     Dates: start: 20040501
  2. QUETIAPINE [Suspect]
     Indication: HALLUCINATION
     Dosage: 25 MG BID PO
     Route: 048
     Dates: start: 20040501
  3. PAROXETINE HCL [Suspect]
     Indication: DEPRESSION
     Dosage: 1 DF DAILY
  4. IBUPROFEN [Concomitant]
  5. LOPERAMIDE HCL [Concomitant]
  6. WHITE SOFT PARAFFIN [Concomitant]
  7. LIQUID PARAFFIN [Concomitant]
  8. TRIMOVATE [Concomitant]
  9. VOLTAREN [Concomitant]
  10. CHLORPHENIRAMINE MALEATE [Concomitant]
  11. CALAMINE [Concomitant]
  12. ASCORBIC ACID [Concomitant]
  13. ZINC SULPHATE [Concomitant]
  14. FUROSEMIDE [Concomitant]
  15. ACETAMINOPHEN [Concomitant]
  16. ALLOPURINOL [Concomitant]
  17. AQUEOUS CREAM [Concomitant]
  18. CARMELLOSE SODIUM [Concomitant]

REACTIONS (4)
  - ABNORMAL BEHAVIOUR [None]
  - DRUG INTERACTION [None]
  - HALLUCINATION [None]
  - HYPOGLYCAEMIA [None]
